FAERS Safety Report 5293902-8 (Version None)
Quarter: 2007Q2

REPORT INFORMATION
  Report Type: 
  Country: None (occurrence: None)
  Receive Date: 20070411
  Receipt Date: 20070330
  Transmission Date: 20071010
  Serious: Yes (Other)
  Sender: FDA-Public Use
  Company Number: US-PFIZER INC-2007026219

PATIENT
  Sex: Male
  Weight: 72.6 kg

DRUGS (1)
  1. CAVERJECT [Suspect]
     Indication: ERECTILE DYSFUNCTION

REACTIONS (6)
  - BRAIN CANCER METASTATIC [None]
  - LIVER FUNCTION TEST ABNORMAL [None]
  - LUNG CANCER METASTATIC [None]
  - MALIGNANT MELANOMA [None]
  - METASTASES TO CENTRAL NERVOUS SYSTEM [None]
  - METASTASES TO LUNG [None]
